FAERS Safety Report 24683933 (Version 3)
Quarter: 2025Q1

REPORT INFORMATION
  Report Type: Spontaneous
  Country: US (occurrence: US)
  Receive Date: 20241202
  Receipt Date: 20250307
  Transmission Date: 20250408
  Serious: No
  Sender: KARYOPHARM THERAPEUTICS
  Company Number: US-KARYOPHARM-2024KPT001831

PATIENT

DRUGS (10)
  1. XPOVIO [Suspect]
     Active Substance: SELINEXOR
     Indication: Plasma cell myeloma
     Dosage: 40 MG, WEEKLY
     Route: 048
     Dates: end: 202412
  2. XPOVIO [Suspect]
     Active Substance: SELINEXOR
     Dosage: 20 MG, WEEKLY
     Route: 048
  3. PROZAC [Concomitant]
     Active Substance: FLUOXETINE HYDROCHLORIDE
  4. DAPSONE [Concomitant]
     Active Substance: DAPSONE
  5. ACYCLOVIR [Concomitant]
     Active Substance: ACYCLOVIR
  6. LEVOTHYROXINE [Concomitant]
     Active Substance: LEVOTHYROXINE
  7. CIALIS [Concomitant]
     Active Substance: TADALAFIL
  8. ONDANSETRON [Concomitant]
     Active Substance: ONDANSETRON
  9. DEXAMETHASONE [Concomitant]
     Active Substance: DEXAMETHASONE
  10. ABILIFY [Concomitant]
     Active Substance: ARIPIPRAZOLE

REACTIONS (3)
  - Nasopharyngitis [Recovering/Resolving]
  - Gastrooesophageal reflux disease [Unknown]
  - Decreased appetite [Unknown]
